FAERS Safety Report 20652738 (Version 6)
Quarter: 2022Q4

REPORT INFORMATION
  Report Type: Report from Study
  Country: US (occurrence: US)
  Receive Date: 20220330
  Receipt Date: 20221102
  Transmission Date: 20230113
  Serious: Yes (Hospitalization)
  Sender: FDA-Public Use
  Company Number: US-NOVARTISTESTPH-NVSC2022US071548

PATIENT
  Sex: Female

DRUGS (3)
  1. TASIGNA [Suspect]
     Active Substance: NILOTINIB
     Indication: Chronic myeloid leukaemia
     Dosage: 150 MG, BID (TAKE 2 CAPSULES BY MOUTH TWICE DAILY)
     Route: 048
     Dates: end: 20220318
  2. TASIGNA [Suspect]
     Active Substance: NILOTINIB
     Indication: Philadelphia chromosome positive
  3. SPRYCEL [Suspect]
     Active Substance: DASATINIB
     Indication: Product used for unknown indication
     Dosage: UNK
     Route: 065

REACTIONS (4)
  - Cardiac disorder [Unknown]
  - Fluid retention [Unknown]
  - Pulmonary oedema [Unknown]
  - Rash [Unknown]
